FAERS Safety Report 5723974-5 (Version None)
Quarter: 2008Q2

REPORT INFORMATION
  Report Type: 
  Country: None (occurrence: None)
  Receive Date: 20080430
  Receipt Date: 20080418
  Transmission Date: 20081010
  Serious: Yes (Death, Life-Threatening, Hospitalization)
  Sender: FDA-Public Use
  Company Number: BR-ABBOTT-05P-020-0297030-00

PATIENT
  Sex: Male

DRUGS (12)
  1. RITONAVIR SOFT GELATIN CAPSULES [Suspect]
     Indication: HIV INFECTION
     Route: 048
     Dates: start: 20041020, end: 20050404
  2. RITONAVIR SOFT GELATIN CAPSULES [Suspect]
     Route: 048
     Dates: start: 20050511, end: 20050517
  3. TIPRANAVIR [Concomitant]
     Indication: HIV INFECTION
     Route: 048
     Dates: start: 20041020, end: 20050404
  4. TIPRANAVIR [Concomitant]
     Route: 048
     Dates: start: 20050511, end: 20050517
  5. LAMIVUDINE [Concomitant]
     Indication: HIV INFECTION
     Route: 048
     Dates: start: 20021022, end: 20050404
  6. LAMIVUDINE [Concomitant]
  7. TENOFOVIR DISOPROXIL FUMARATE [Concomitant]
     Indication: HIV INFECTION
     Route: 048
     Dates: start: 20020724, end: 20050404
  8. TENOFOVIR DISOPROXIL FUMARATE [Concomitant]
  9. AZITHROMYCIN [Concomitant]
     Indication: ANTIBIOTIC PROPHYLAXIS
     Route: 048
  10. ZIDOVUDINE [Concomitant]
     Indication: HIV INFECTION
     Route: 048
     Dates: start: 20031022, end: 20050211
  11. ZIDOVUDINE [Concomitant]
  12. BACTRIM [Concomitant]
     Indication: PNEUMOCYSTIS JIROVECI PNEUMONIA
     Dosage: 800/160 MG
     Route: 048

REACTIONS (2)
  - ANAEMIA [None]
  - DEATH [None]
